FAERS Safety Report 16980343 (Version 1)
Quarter: 2019Q4

REPORT INFORMATION
  Report Type: Report from Study
  Country: US (occurrence: US)
  Receive Date: 20191031
  Receipt Date: 20191031
  Transmission Date: 20200122
  Serious: Yes (Other)
  Sender: FDA-Public Use
  Company Number: US-ASTRAZENECA-2019SF37589

PATIENT
  Age: 27529 Day
  Sex: Female

DRUGS (6)
  1. TAGRISSO [Suspect]
     Active Substance: OSIMERTINIB
     Indication: LUNG CARCINOMA CELL TYPE UNSPECIFIED STAGE 0
     Dosage: 80MG/G DAILY
     Route: 048
     Dates: start: 20190805
  2. IBUPROFEN. [Concomitant]
     Active Substance: IBUPROFEN
     Dosage: 200.0MG AS REQUIRED
  3. CLINDAMYCIN. [Concomitant]
     Active Substance: CLINDAMYCIN
     Dosage: TWO TIMES A DAY
     Route: 061
  4. OXYCODONE [Concomitant]
     Active Substance: OXYCODONE
  5. GABAPENTIN. [Concomitant]
     Active Substance: GABAPENTIN
  6. DOCUSATE [Concomitant]
     Active Substance: DOCUSATE

REACTIONS (18)
  - Dyspnoea exertional [Unknown]
  - Rhinorrhoea [Unknown]
  - Body temperature fluctuation [Unknown]
  - Osteopenia [Unknown]
  - Osteoarthritis [Unknown]
  - Dry skin [Unknown]
  - Cough [Unknown]
  - Hyperlipidaemia [Unknown]
  - Diarrhoea [Not Recovered/Not Resolved]
  - Taste disorder [Unknown]
  - Headache [Unknown]
  - Vitreous floaters [Not Recovered/Not Resolved]
  - Rash [Recovered/Resolved]
  - Vitamin D deficiency [Unknown]
  - Epistaxis [Not Recovered/Not Resolved]
  - Muscle spasms [Not Recovered/Not Resolved]
  - Deafness [Unknown]
  - Fatigue [Unknown]

NARRATIVE: CASE EVENT DATE: 20190901
